FAERS Safety Report 24666170 (Version 2)
Quarter: 2025Q3

REPORT INFORMATION
  Report Type: Spontaneous
  Country: GB (occurrence: GB)
  Receive Date: 20241126
  Receipt Date: 20250809
  Transmission Date: 20251020
  Serious: Yes (Other)
  Sender: ALEXION PHARMACEUTICALS
  Company Number: GB-ASTRAZENECA-202409GBR011301GB

PATIENT
  Age: 28 Year
  Sex: Male

DRUGS (5)
  1. CALQUENCE [Suspect]
     Active Substance: ACALABRUTINIB
     Indication: Chronic lymphocytic leukaemia
  2. LANSOPRAZOLE [Concomitant]
     Active Substance: LANSOPRAZOLE
     Indication: Gastritis
  3. DOMPERIDONE [Concomitant]
     Active Substance: DOMPERIDONE
     Indication: Gastritis
  4. IBRUTINIB [Concomitant]
     Active Substance: IBRUTINIB
  5. VENETOCLAX [Concomitant]
     Active Substance: VENETOCLAX

REACTIONS (13)
  - Choking [Unknown]
  - Lymphadenopathy [Unknown]
  - Regurgitation [Unknown]
  - Gastritis [Unknown]
  - Weight decreased [Unknown]
  - Lymph node palpable [Unknown]
  - Pharyngeal swelling [Unknown]
  - Pathogen resistance [Unknown]
  - Dysphagia [Unknown]
  - Tonsillitis [Unknown]
  - Lymphocytosis [Unknown]
  - Sleep apnoea syndrome [Unknown]
  - Gastrooesophageal reflux disease [Unknown]
